FAERS Safety Report 8495298-7 (Version None)
Quarter: 2012Q3

REPORT INFORMATION
  Report Type: 
  Country: None (occurrence: None)
  Receive Date: 20120709
  Receipt Date: 20120703
  Transmission Date: 20120928
  Serious: Yes (Other)
  Sender: FDA-Public Use
  Company Number: JP-PFIZER INC-2012159606

PATIENT
  Age: 10 Year
  Sex: Female

DRUGS (1)
  1. GABAPENTIN [Suspect]
     Indication: EPILEPSY
     Dosage: 1000MG:(400MG X 2 + 200MG X 1) DAILY
     Route: 048

REACTIONS (2)
  - REGRESSIVE BEHAVIOUR [None]
  - DYSCALCULIA [None]
